FAERS Safety Report 9054843 (Version 1)
Quarter: 2013Q1

REPORT INFORMATION
  Report Type: Spontaneous
  Country: US (occurrence: US)
  Receive Date: 20130208
  Receipt Date: 20130208
  Transmission Date: 20140127
  Serious: Yes (Other)
  Sender: FDA-Public Use
  Company Number: US-SANOFI-AVENTIS-2013SA011521

PATIENT
  Sex: Female

DRUGS (1)
  1. MYTELASE [Suspect]
     Indication: MYASTHENIA GRAVIS
     Dosage: FROM 3-4 YEARS AGO

REACTIONS (1)
  - Breast cancer [Unknown]
